FAERS Safety Report 16932314 (Version 3)
Quarter: 2019Q4

REPORT INFORMATION
  Report Type: Spontaneous
  Country: JP (occurrence: JP)
  Receive Date: 20191017
  Receipt Date: 20191227
  Transmission Date: 20200122
  Serious: Yes (Hospitalization, Other)
  Sender: FDA-Public Use
  Company Number: JP-GILEAD-2019-0433254

PATIENT
  Age: 73 Year
  Sex: Female
  Weight: 56.3 kg

DRUGS (18)
  1. EPCLUSA [Suspect]
     Active Substance: SOFOSBUVIR\VELPATASVIR
     Indication: VIRAEMIA
     Dosage: 1 DOSAGE FORM, QD
     Route: 048
     Dates: start: 20190731, end: 20191012
  2. GLIMEPIRIDE. [Concomitant]
     Active Substance: GLIMEPIRIDE
     Indication: DIABETES MELLITUS
     Dosage: 1 DOSAGE FORM, QD
     Route: 048
     Dates: start: 20150601
  3. NEXIUM I.V. [Concomitant]
     Active Substance: ESOMEPRAZOLE SODIUM
     Indication: PORTAL HYPERTENSIVE GASTROPATHY
     Dosage: 1 CAPSULE , QD
     Route: 048
     Dates: start: 20151104
  4. LIVACT [ISOLEUCINE;LEUCINE;VALINE] [Concomitant]
     Indication: HYPOALBUMINAEMIA
     Dosage: 1 PACKAGE, TID
     Route: 048
     Dates: start: 20061019
  5. JANUVIA [Concomitant]
     Active Substance: SITAGLIPTIN PHOSPHATE
     Indication: DIABETES MELLITUS
     Dosage: 2 DOSAGE FORM, QD
     Route: 048
     Dates: start: 20111026
  6. LINZESS [Concomitant]
     Active Substance: LINACLOTIDE
     Indication: CONSTIPATION
     Dosage: 2 DOSAGE FORM, QD
     Route: 048
     Dates: start: 20190210
  7. SHAKUYAKUKANZOTO [Concomitant]
     Active Substance: HERBALS
     Indication: MUSCLE SPASMS
     Dosage: 25 G, TID
     Route: 048
     Dates: start: 20190606
  8. URSO [Concomitant]
     Active Substance: URSODIOL
     Indication: PROPHYLAXIS
     Dosage: 2 DOSAGE FORM, TID
     Route: 048
     Dates: start: 19971225
  9. FERROUS CITRATE NA [Concomitant]
     Active Substance: SODIUM FERROUS CITRATE
     Indication: IRON DEFICIENCY ANAEMIA
     Dosage: 1 DOSAGE FORM, QD
     Route: 048
     Dates: start: 20151104
  10. SPIRONOLACTONE. [Concomitant]
     Active Substance: SPIRONOLACTONE
     Indication: ASCITES
     Dosage: 2 DOSAGE FORM, QD
     Route: 048
     Dates: start: 20151028
  11. ALBUMIN [Concomitant]
     Active Substance: ALBUMIN HUMAN
  12. RIFXIMA [Concomitant]
     Active Substance: RIFAXIMIN
     Indication: HEPATIC ENCEPHALOPATHY
     Dosage: 2 DOSAGE FORM, TID
     Route: 048
     Dates: start: 20190125
  13. VOGLIBOSE [Concomitant]
     Active Substance: VOGLIBOSE
     Indication: DIABETES MELLITUS
     Dosage: 1 DOSAGE FORM, TID
     Route: 048
     Dates: start: 20050512
  14. FEBURIC [Concomitant]
     Active Substance: FEBUXOSTAT
  15. SAMSCA [Concomitant]
     Active Substance: TOLVAPTAN
     Indication: ASCITES
     Dosage: 1 DOSAGE FORM, BID
     Route: 048
     Dates: start: 20190121
  16. FUROSEMIDE. [Concomitant]
     Active Substance: FUROSEMIDE
     Indication: ASCITES
     Dosage: 1 DOSAGE FORM, QD
     Route: 048
     Dates: start: 20151028
  17. RELVAR [Concomitant]
     Active Substance: FLUTICASONE FUROATE\VILANTEROL TRIFENATATE
  18. PIARLE [Concomitant]
     Active Substance: LACTULOSE
     Indication: HEPATIC ENCEPHALOPATHY
     Dosage: 20 ML, TID
     Route: 048
     Dates: start: 20160615

REACTIONS (1)
  - Ascites [Not Recovered/Not Resolved]

NARRATIVE: CASE EVENT DATE: 20191012
